FAERS Safety Report 5858966-9 (Version None)
Quarter: 2008Q3

REPORT INFORMATION
  Report Type: 
  Country: None (occurrence: None)
  Receive Date: 20080826
  Receipt Date: 20080819
  Transmission Date: 20090109
  Serious: Yes (Hospitalization)
  Sender: FDA-Public Use
  Company Number: JP-JNJFOC-20080801846

PATIENT
  Sex: Male

DRUGS (9)
  1. REMICADE [Suspect]
     Route: 042
  2. REMICADE [Suspect]
     Indication: PSORIATIC ARTHROPATHY
     Route: 042
  3. METHOTREXATE [Concomitant]
     Indication: RHEUMATOID ARTHRITIS
  4. FOLIAMIN [Concomitant]
     Indication: LIVER DISORDER
  5. ISCOTIN [Concomitant]
     Indication: ANTIBIOTIC PROPHYLAXIS
  6. PYDOXAL [Concomitant]
     Indication: PROPHYLAXIS
  7. MUCOSTA [Concomitant]
     Indication: GASTRITIS
  8. ALESION [Concomitant]
     Indication: PRURITUS
  9. LANSOPRAZOLE [Concomitant]
     Indication: GASTRITIS

REACTIONS (1)
  - PNEUMOCYSTIS JIROVECI PNEUMONIA [None]
